FAERS Safety Report 16224300 (Version 1)
Quarter: 2019Q2

REPORT INFORMATION
  Report Type: Report from Study
  Country: KR (occurrence: KR)
  Receive Date: 20190422
  Receipt Date: 20190422
  Transmission Date: 20190711
  Serious: Yes (Other)
  Sender: FDA-Public Use
  Company Number: KR-ASTELLAS-2018US042769

PATIENT
  Age: 87 Year
  Sex: Male

DRUGS (8)
  1. LIPITOR [Concomitant]
     Active Substance: ATORVASTATIN CALCIUM
     Indication: HYPERLIPIDAEMIA
     Route: 048
  2. ENZALUTAMIDE [Suspect]
     Active Substance: ENZALUTAMIDE
     Route: 048
     Dates: start: 20171002, end: 20171112
  3. TARGIN [Concomitant]
     Active Substance: NALOXONE HYDROCHLORIDE\OXYCODONE HYDROCHLORIDE
     Indication: ARTHRALGIA
     Dosage: 2 DF, UNKNOWN FREQ. (10/5 MG)
     Route: 048
     Dates: start: 20170808
  4. ENZALUTAMIDE [Suspect]
     Active Substance: ENZALUTAMIDE
     Route: 048
     Dates: start: 20171121
  5. HARDCAL [Concomitant]
     Active Substance: CALCIUM CARBONATE\CHOLECALCIFEROL
     Indication: PROPHYLAXIS
     Route: 048
     Dates: end: 20171030
  6. ENZALUTAMIDE [Suspect]
     Active Substance: ENZALUTAMIDE
     Indication: PRODUCT USED FOR UNKNOWN INDICATION
     Route: 048
     Dates: start: 20170808, end: 20171001
  7. SOLONDO [Concomitant]
     Active Substance: PREDNISOLONE
     Indication: PROPHYLAXIS
     Route: 048
     Dates: start: 20170905
  8. CELEBREX [Concomitant]
     Active Substance: CELECOXIB
     Indication: ARTHRALGIA
     Route: 048
     Dates: end: 20171030

REACTIONS (4)
  - Oedema peripheral [Recovering/Resolving]
  - Urticaria [Recovered/Resolved]
  - Decreased appetite [Recovered/Resolved]
  - Listless [Recovering/Resolving]

NARRATIVE: CASE EVENT DATE: 20170905
